FAERS Safety Report 24578698 (Version 4)
Quarter: 2024Q4

REPORT INFORMATION
  Report Type: Report from Study
  Country: KR (occurrence: KR)
  Receive Date: 20241105
  Receipt Date: 20241122
  Transmission Date: 20250114
  Serious: Yes (Hospitalization)
  Sender: ABBVIE
  Company Number: KR-ABBVIE-5985355

PATIENT
  Age: 51 Year
  Sex: Female
  Weight: 68 kg

DRUGS (18)
  1. RINVOQ [Suspect]
     Active Substance: UPADACITINIB
     Indication: Colitis ulcerative
     Route: 048
     Dates: start: 20240906, end: 20241017
  2. RINVOQ [Suspect]
     Active Substance: UPADACITINIB
     Indication: Colitis ulcerative
     Route: 048
     Dates: start: 20241029
  3. PREDNISOLONE [Concomitant]
     Active Substance: PREDNISOLONE
     Indication: Colitis ulcerative
     Route: 048
     Dates: start: 20240911, end: 20240915
  4. PREDNISOLONE [Concomitant]
     Active Substance: PREDNISOLONE
     Indication: Colitis ulcerative
     Route: 048
     Dates: start: 20240906, end: 20240910
  5. PREDNISOLONE [Concomitant]
     Active Substance: PREDNISOLONE
     Indication: Colitis ulcerative
     Route: 048
     Dates: start: 20240920, end: 20240926
  6. PREDNISOLONE [Concomitant]
     Active Substance: PREDNISOLONE
     Indication: Colitis ulcerative
     Route: 048
     Dates: start: 20240927, end: 20241003
  7. NORVASC [Concomitant]
     Active Substance: AMLODIPINE BESYLATE
     Indication: Hypertension
     Dosage: FORM STRENGTH: 5 MILLIGRAM
     Route: 048
     Dates: start: 20240318
  8. SMOFKABIVEN PERIPHERAL [Concomitant]
     Indication: Nutritional supplementation
     Dosage: UNIT DOSE: 1 BAG,?FORM STRENGTH: 1448 MILLILITRE
     Route: 042
     Dates: start: 20241018, end: 20241018
  9. K CAB [Concomitant]
     Indication: Gastrooesophageal reflux disease
     Dosage: FORM STRENGTH: 50 MILLIGRAM
     Route: 048
     Dates: start: 20240813, end: 20241017
  10. K CAB [Concomitant]
     Indication: Gastrooesophageal reflux disease
     Dosage: FORM STRENGTH: 25 MILLIGRAM
     Route: 048
     Dates: start: 20241018
  11. Bukwang Midazolam [Concomitant]
     Indication: Sedative therapy
     Dosage: 5MG/5ML?FORM STRENGTH: 1 MILLIGRAM/MILLILITERS
     Route: 042
     Dates: start: 20241017, end: 20241017
  12. Bukwang Midazolam [Concomitant]
     Indication: Sedative therapy
     Dosage: 5MG/5ML?FORM STRENGTH: 1 MILLIGRAM/MILLILITERS
     Route: 042
     Dates: start: 20241025, end: 20241025
  13. ALPIT [Concomitant]
     Indication: Bowel preparation
     Dosage: 5MG/ML, ?FORM STRENGTH: 5 MILLIGRAM/MILLILITERS
     Route: 042
     Dates: start: 20241017, end: 20241017
  14. ALPIT [Concomitant]
     Indication: Bowel preparation
     Dosage: FORM STRENGTH: 5 MILLIGRAM/MILLILITERS
     Route: 042
     Dates: start: 20241025, end: 20241025
  15. PROPOFOL [Concomitant]
     Active Substance: PROPOFOL
     Indication: Sedative therapy
     Dosage: (AMP) - FORM STRENGTH: 12 MILLILITRE(S)
     Route: 042
     Dates: start: 20241025, end: 20241025
  16. PROPOFOL [Concomitant]
     Active Substance: PROPOFOL
     Indication: Sedative therapy
     Dosage: (AMP)) - FORM STRENGTH: 12 MILLILITRE(S)
     Route: 042
     Dates: start: 20241017, end: 20241017
  17. SODIUM CHLORIDE [Concomitant]
     Active Substance: SODIUM CHLORIDE
     Indication: Vehicle solution use
     Dosage: NORMAL SALINE INJECTION (DAIHAN)110ML, ?FORM STRENGTH: 110 MILLILITRE(S)
     Route: 042
     Dates: start: 20241018, end: 20241028
  18. SODIUM CHLORIDE [Concomitant]
     Active Substance: SODIUM CHLORIDE
     Indication: Dehydration
     Dosage: NORMAL SALINE INJECTION (JW) 1000 ML, FORM STRENGTH: 1000 MILLILITRE(S),?UNIT DOSE: 1 BAG
     Route: 042
     Dates: start: 20241019, end: 20241023

REACTIONS (2)
  - Cytomegalovirus infection [Recovered/Resolved with Sequelae]
  - Pyrexia [Not Recovered/Not Resolved]

NARRATIVE: CASE EVENT DATE: 20240906
